FAERS Safety Report 25233565 (Version 3)
Quarter: 2025Q3

REPORT INFORMATION
  Report Type: Spontaneous
  Country: US (occurrence: US)
  Receive Date: 20250424
  Receipt Date: 20250816
  Transmission Date: 20251020
  Serious: No
  Sender: ALEXION PHARMACEUTICALS
  Company Number: US-AstraZeneca-CH-00854257A

PATIENT
  Sex: Female

DRUGS (3)
  1. BUDESONIDE [Suspect]
     Active Substance: BUDESONIDE
     Route: 065
  2. AIRSUPRA [Concomitant]
     Active Substance: ALBUTEROL SULFATE\BUDESONIDE
  3. BREZTRI [Concomitant]
     Active Substance: BUDESONIDE\FORMOTEROL\GLYCOPYRROLATE

REACTIONS (8)
  - Hypersensitivity [Unknown]
  - Chronic obstructive pulmonary disease [Unknown]
  - Secretion discharge [Unknown]
  - Oropharyngeal pain [Unknown]
  - Product availability issue [Unknown]
  - Dysphonia [Unknown]
  - Product dose omission issue [Unknown]
  - Off label use [Unknown]
